FAERS Safety Report 13196817 (Version 1)
Quarter: 2017Q1

REPORT INFORMATION
  Report Type: Spontaneous
  Country: GB (occurrence: GB)
  Receive Date: 20170208
  Receipt Date: 20170208
  Transmission Date: 20170428
  Serious: Yes (Other)
  Sender: FDA-Public Use
  Company Number: GB-GLAXOSMITHKLINE-GB2017014290

PATIENT
  Age: 68 Year
  Sex: Female
  Weight: 77 kg

DRUGS (11)
  1. PREDNISOLONE. [Concomitant]
     Active Substance: PREDNISOLONE
     Dosage: TAKE 6 DAILY FOR 2 DAYS,  THEN 4 DAILY FOR 2 DAYS THEN REDUCE ONE DAILY.
     Route: 065
     Dates: start: 20161207, end: 20161221
  2. SALBUTAMOL [Concomitant]
     Active Substance: ALBUTEROL
     Dosage: 1 OR 2 PUFFS.
     Route: 065
     Dates: start: 20160504
  3. AMOXICILLIN. [Concomitant]
     Active Substance: AMOXICILLIN
     Indication: INFECTION
     Dosage: 1 DF, TID
     Route: 065
     Dates: start: 20160504
  4. CO-AMOXICLAV [Concomitant]
     Active Substance: AMOXICILLIN\CLAVULANIC ACID
     Indication: INFECTION
     Dosage: 1 DF, TID
     Route: 065
     Dates: start: 20161207, end: 20161214
  5. FELODIPINE. [Concomitant]
     Active Substance: FELODIPINE
     Dosage: 1 DF, QD
     Route: 065
     Dates: start: 20160504
  6. SIMVASTATIN. [Concomitant]
     Active Substance: SIMVASTATIN
     Dosage: 1 DF, QD
     Route: 065
     Dates: start: 20160504
  7. SERETIDE [Concomitant]
     Active Substance: FLUTICASONE PROPIONATE\SALMETEROL XINAFOATE
     Dosage: 2 DF, BID
     Route: 055
     Dates: start: 20160504
  8. RELVAR ELLIPTA [Suspect]
     Active Substance: FLUTICASONE FUROATE\VILANTEROL TRIFENATATE
     Indication: PRODUCT USED FOR UNKNOWN INDICATION
     Dosage: UNK
     Route: 065
     Dates: start: 20161020
  9. COCODAMOL [Concomitant]
     Active Substance: ACETAMINOPHEN\CODEINE PHOSPHATE
     Indication: PAIN
     Dosage: TAKE 1 OR 2, FOUR TIMES DAILY.
     Route: 065
     Dates: start: 20161207, end: 20161212
  10. TIOTROPIUM [Concomitant]
     Active Substance: TIOTROPIUM
     Dosage: 1 DF, QD
     Route: 055
     Dates: start: 20160504
  11. BENDROFLUMETHIAZIDE [Concomitant]
     Active Substance: BENDROFLUMETHIAZIDE
     Dosage: EACH MORNING.
     Route: 065
     Dates: start: 20160628

REACTIONS (2)
  - Wheezing [Recovered/Resolved]
  - Dyspnoea [Recovered/Resolved]
